FAERS Safety Report 7192989-5 (Version None)
Quarter: 2010Q4

REPORT INFORMATION
  Report Type: 
  Country: None (occurrence: None)
  Receive Date: 20101223
  Receipt Date: 20101001
  Transmission Date: 20110411
  Serious: No
  Sender: FDA-Public Use
  Company Number: US-BAYER-201022093BCC

PATIENT
  Sex: Female
  Weight: 127.27 kg

DRUGS (4)
  1. ALEVE [Suspect]
  2. ADDERALL 10 [Concomitant]
  3. LISINOPRIL [Concomitant]
  4. LORTAB [Concomitant]

REACTIONS (1)
  - LIP SWELLING [None]
